FAERS Safety Report 7320687-3 (Version None)
Quarter: 2011Q1

REPORT INFORMATION
  Report Type: 
  Country: None (occurrence: None)
  Receive Date: 20110228
  Receipt Date: 20110216
  Transmission Date: 20110831
  Serious: Yes (Other)
  Sender: FDA-Public Use
  Company Number: JP-JNJFOC-20080404535

PATIENT

DRUGS (1)
  1. INFLIXIMAB [Suspect]
     Indication: RHEUMATOID ARTHRITIS

REACTIONS (3)
  - SPINAL OPERATION [None]
  - POST PROCEDURAL HAEMORRHAGE [None]
  - POST PROCEDURAL INFECTION [None]
